FAERS Safety Report 9539503 (Version 1)
Quarter: 2013Q2

REPORT INFORMATION
  Report Type: Spontaneous
  Country: US (occurrence: None)
  Receive Date: 20130507
  Receipt Date: 20130507
  Transmission Date: 20140414
  Serious: No
  Sender: FDA-Public Use
  Company Number: PHEH2013US004464

PATIENT
  Age: 57 Year
  Sex: Male
  Weight: 107.5 kg

DRUGS (5)
  1. AFINITOR [Suspect]
     Route: 048
  2. PRAVASTATIN (PRAVASTATIN) [Concomitant]
  3. NORVASC (AMLODIPINE BESILATE) [Concomitant]
  4. VIAGRA (SILDENAFIL CITRATE) [Concomitant]
  5. PERCOCET [Concomitant]

REACTIONS (1)
  - Abdominal pain upper [None]
